FAERS Safety Report 20006685 (Version 2)
Quarter: 2021Q4

REPORT INFORMATION
  Report Type: Spontaneous
  Country: CN (occurrence: None)
  Receive Date: 20211028
  Receipt Date: 20211121
  Transmission Date: 20220304
  Serious: Yes (Other)
  Sender: FDA-Public Use
  Company Number: CN-ROCHE-2942634

PATIENT
  Age: 73 Year
  Sex: Female

DRUGS (28)
  1. MABTHERA [Suspect]
     Active Substance: RITUXIMAB
     Indication: Follicular lymphoma
     Dosage: R-CHOP
     Route: 065
     Dates: start: 20170610
  2. MABTHERA [Suspect]
     Active Substance: RITUXIMAB
     Route: 065
     Dates: start: 201902
  3. MABTHERA [Suspect]
     Active Substance: RITUXIMAB
     Dosage: R-CDOP
     Route: 065
     Dates: start: 20200430, end: 20201002
  4. MABTHERA [Suspect]
     Active Substance: RITUXIMAB
     Dosage: R-GDP
     Route: 065
     Dates: start: 20201101
  5. MABTHERA [Suspect]
     Active Substance: RITUXIMAB
     Dosage: R2
     Route: 065
     Dates: start: 20201211
  6. MABTHERA [Suspect]
     Active Substance: RITUXIMAB
     Dosage: BR
     Route: 065
     Dates: start: 20210208
  7. MABTHERA [Suspect]
     Active Substance: RITUXIMAB
     Route: 065
     Dates: start: 202002, end: 20200413
  8. GAZYVA [Suspect]
     Active Substance: OBINUTUZUMAB
     Indication: Diffuse large B-cell lymphoma
     Dosage: DAY5
     Route: 042
     Dates: start: 20210928
  9. GAZYVA [Suspect]
     Active Substance: OBINUTUZUMAB
     Dosage: DAY0
     Route: 042
     Dates: start: 20211028
  10. GAZYVA [Suspect]
     Active Substance: OBINUTUZUMAB
     Dosage: DAY5
     Route: 042
     Dates: start: 20211111
  11. CYCLOPHOSPHAMIDE [Concomitant]
     Active Substance: CYCLOPHOSPHAMIDE
     Indication: Follicular lymphoma
     Dosage: R-CHOP
     Dates: start: 20170610
  12. CYCLOPHOSPHAMIDE [Concomitant]
     Active Substance: CYCLOPHOSPHAMIDE
     Dosage: R-CDOP
     Dates: start: 20200430, end: 20201002
  13. DOXORUBICIN [Concomitant]
     Active Substance: DOXORUBICIN
     Indication: Follicular lymphoma
     Dosage: R-CHOP
     Dates: start: 20170610
  14. VINCRISTINE [Concomitant]
     Active Substance: VINCRISTINE
     Indication: Follicular lymphoma
     Dosage: R-CHOP
     Dates: start: 20170610
  15. VINCRISTINE [Concomitant]
     Active Substance: VINCRISTINE
     Dosage: R-CDOP
     Dates: start: 20200430, end: 20201002
  16. PREDNISONE [Concomitant]
     Active Substance: PREDNISONE
     Indication: Follicular lymphoma
     Dosage: R-CHOP
     Dates: start: 20170610
  17. PREDNISONE [Concomitant]
     Active Substance: PREDNISONE
     Dosage: R-CDOP
     Dates: start: 20200430, end: 20201002
  18. IBRUTINIB [Concomitant]
     Active Substance: IBRUTINIB
     Indication: Follicular lymphoma
     Dosage: 420-560 MG PER DAY
     Dates: start: 202002, end: 20200413
  19. GEMCITABINE [Concomitant]
     Active Substance: GEMCITABINE
     Indication: Follicular lymphoma
     Dosage: R-GDP
     Dates: start: 20201101
  20. CISPLATIN [Concomitant]
     Active Substance: CISPLATIN
     Indication: Follicular lymphoma
     Dosage: R-GDP
     Dates: start: 20201101
  21. DEXAMETHASONE [Concomitant]
     Active Substance: DEXAMETHASONE
     Indication: Follicular lymphoma
     Dosage: R-GDP
     Dates: start: 20201101
  22. DEXAMETHASONE [Concomitant]
     Active Substance: DEXAMETHASONE
     Indication: Diffuse large B-cell lymphoma
     Dates: start: 20201211
  23. DEXAMETHASONE [Concomitant]
     Active Substance: DEXAMETHASONE
     Dosage: DAY1-5, 28-SEP-2021, 28-OCT-2021,11-NOV-2021
  24. LENALIDOMIDE [Concomitant]
     Active Substance: LENALIDOMIDE
     Indication: Follicular lymphoma
     Dosage: R2
     Dates: start: 20201211
  25. BENDAMUSTINE [Concomitant]
     Active Substance: BENDAMUSTINE
     Indication: Follicular lymphoma
     Dosage: BR
     Dates: start: 20210208
  26. ETOPOSIDE [Concomitant]
     Active Substance: ETOPOSIDE
     Indication: Diffuse large B-cell lymphoma
     Dosage: DAY1-3
     Dates: start: 20210928
  27. ETOPOSIDE [Concomitant]
     Active Substance: ETOPOSIDE
     Dosage: DAY1-3: 28-OCT-2021, 11-NOV-2021
  28. OXALIPLATIN [Concomitant]
     Active Substance: OXALIPLATIN
     Indication: Diffuse large B-cell lymphoma
     Dosage: DAY4, 28-OCT-2021,11-NOV-2021

REACTIONS (3)
  - Platelet count decreased [Recovering/Resolving]
  - Myelosuppression [Recovering/Resolving]
  - Off label use [Unknown]

NARRATIVE: CASE EVENT DATE: 20200101
